FAERS Safety Report 10784881 (Version 1)
Quarter: 2015Q1

REPORT INFORMATION
  Report Type: Spontaneous
  Country: DE (occurrence: None)
  Receive Date: 20150209
  Receipt Date: 20150209
  Transmission Date: 20150721
  Serious: Yes (Other)
  Sender: FDA-Public Use
  Company Number: 2725746

PATIENT
  Age: 74 Year
  Sex: Male
  Weight: 80 kg

DRUGS (8)
  1. RAMIPRIL. [Concomitant]
     Active Substance: RAMIPRIL
  2. CEFAZOLIN [Suspect]
     Active Substance: CEFAZOLIN
     Indication: ANTIBIOTIC PROPHYLAXIS
     Dosage: NOT OTHERWISE SPECIFIED
     Route: 042
     Dates: start: 20141229
  3. SUFENTANIL [Concomitant]
     Active Substance: SUFENTANIL
  4. ATRACURIUM [Concomitant]
     Active Substance: ATRACURIUM
  5. SEVOFLURANE. [Concomitant]
     Active Substance: SEVOFLURANE
  6. AMLODIPIN [Concomitant]
     Active Substance: AMLODIPINE BESYLATE
  7. PROPOFOL. [Concomitant]
     Active Substance: PROPOFOL
  8. METAMIZOLE SODIUM [Suspect]
     Active Substance: METAMIZOLE SODIUM
     Indication: POSTOPERATIVE ANALGESIA
     Dosage: NOT OTHERWISE SPECIFIED
     Route: 042
     Dates: start: 20141229

REACTIONS (4)
  - Respiration abnormal [None]
  - Dysarthria [None]
  - Dysphagia [None]
  - Swollen tongue [None]

NARRATIVE: CASE EVENT DATE: 20141229
